FAERS Safety Report 8970751 (Version 1)
Quarter: 2012Q4

REPORT INFORMATION
  Report Type: 
  Country: GB (occurrence: IE)
  Receive Date: 20121218
  Receipt Date: 20121218
  Transmission Date: 20130627
  Serious: Yes (Death, Other)
  Sender: FDA-Public Use
  Company Number: IE-009507513-1201GBR00017

PATIENT
  Sex: Female

DRUGS (2)
  1. CANCIDAS [Suspect]
     Route: 041
  2. NOXAFIL [Suspect]

REACTIONS (2)
  - Aspergillosis [Fatal]
  - Acute lymphocytic leukaemia [Unknown]
